FAERS Safety Report 6324731-1 (Version None)
Quarter: 2009Q3

REPORT INFORMATION
  Report Type: 
  Country: None (occurrence: None)
  Receive Date: 20090824
  Receipt Date: 20090504
  Transmission Date: 20100115
  Serious: No
  Sender: FDA-Public Use
  Company Number: US-ABBOTT-09P-163-0571356-00

PATIENT
  Sex: Female

DRUGS (8)
  1. NIASPAN [Suspect]
     Indication: BLOOD CHOLESTEROL INCREASED
     Route: 048
     Dates: start: 20090421, end: 20090503
  2. NIASPAN [Suspect]
     Indication: BLOOD TRIGLYCERIDES
  3. PENTOXIFYLLINE [Concomitant]
     Indication: DRUG USE FOR UNKNOWN INDICATION
  4. KALETRA [Concomitant]
     Indication: DRUG USE FOR UNKNOWN INDICATION
  5. STAVUDINE [Concomitant]
     Indication: DRUG USE FOR UNKNOWN INDICATION
  6. VIREAD [Concomitant]
     Indication: DRUG USE FOR UNKNOWN INDICATION
  7. GARLIC [Concomitant]
     Indication: DRUG USE FOR UNKNOWN INDICATION
     Route: 048
  8. FISH OIL [Concomitant]
     Indication: DRUG USE FOR UNKNOWN INDICATION
     Route: 048

REACTIONS (9)
  - ABDOMINAL DISCOMFORT [None]
  - DIARRHOEA [None]
  - DIZZINESS [None]
  - FLUSHING [None]
  - SKIN BURNING SENSATION [None]
  - SKIN LACERATION [None]
  - SYNCOPE [None]
  - URTICARIA [None]
  - WOUND HAEMORRHAGE [None]
